FAERS Safety Report 5466976-9 (Version None)
Quarter: 2007Q3

REPORT INFORMATION
  Report Type: 
  Country: None (occurrence: None)
  Receive Date: 20070920
  Receipt Date: 20070904
  Transmission Date: 20080115
  Serious: Yes (Hospitalization)
  Sender: FDA-Public Use
  Company Number: 000#5#2007-00270

PATIENT
  Age: 37 Year
  Sex: Female

DRUGS (8)
  1. ROTIGOTIN-20CM - 9MG-PATCH (ROTIGOTINE) [Suspect]
     Indication: FIBROMYALGIA
     Dosage: 4MG/24H; TRANSDERMAL
     Route: 062
     Dates: start: 20070816
  2. PREGABALIN [Concomitant]
  3. TIZANIDINE HCL [Concomitant]
  4. AMITRIPTYLINE HYDROCHLORIDE [Concomitant]
  5. DULOXETINE HYDROCHLORIDE [Concomitant]
  6. OXYCODONE HYDROCHLORIDE, PARACETAMOL (OXYCODONE HYDROCHLORIDE, OXYCODO [Concomitant]
  7. ZOLPIDEM TARTRATE [Concomitant]
  8. NITROFURANTOIN [Concomitant]

REACTIONS (8)
  - BLOOD GLUCOSE INCREASED [None]
  - BLOOD PRESSURE DECREASED [None]
  - CHEST PAIN [None]
  - HYPERHIDROSIS [None]
  - MUSCULOSKELETAL CHEST PAIN [None]
  - NAUSEA [None]
  - PROTHROMBIN TIME PROLONGED [None]
  - URINARY TRACT INFECTION [None]
